FAERS Safety Report 10450836 (Version 2)
Quarter: 2014Q3

REPORT INFORMATION
  Report Type: Spontaneous
  Country: US (occurrence: US)
  Receive Date: 20140912
  Receipt Date: 20140929
  Transmission Date: 20150326
  Serious: Yes (Other)
  Sender: FDA-Public Use
  Company Number: US-BAYER-2014-131667

PATIENT
  Age: 10 Year
  Sex: Female

DRUGS (1)
  1. BAYER GENUINE ASPIRIN [Suspect]
     Active Substance: ASPIRIN
     Indication: PYREXIA
     Dosage: 650 MG, Q4HR
     Route: 048
     Dates: end: 196106

REACTIONS (6)
  - Pyrexia [Recovered/Resolved]
  - Extra dose administered [None]
  - Urticaria [Recovered/Resolved]
  - Pneumonia [Recovered/Resolved]
  - Incorrect drug administration duration [None]
  - Drug hypersensitivity [Not Recovered/Not Resolved]

NARRATIVE: CASE EVENT DATE: 196105
